FAERS Safety Report 5179471-1 (Version None)
Quarter: 2006Q4

REPORT INFORMATION
  Report Type: 
  Country: None (occurrence: None)
  Receive Date: 20061211
  Receipt Date: 20061123
  Transmission Date: 20070319
  Serious: Yes (Life-Threatening)
  Sender: FDA-Public Use
  Company Number: 229946

PATIENT
  Age: 60 Year
  Sex: Female
  Weight: 52.7 kg

DRUGS (1)
  1. MABTHERA (RITUXIMAB)CONC FOR SOLUTION FOR INFUSION [Suspect]
     Indication: NON-HODGKIN'S LYMPHOMA
     Dosage: 600 MG
     Dates: start: 20040923, end: 20060724

REACTIONS (5)
  - BLOOD CULTURE POSITIVE [None]
  - CULTURE URINE POSITIVE [None]
  - ENTEROCOCCAL INFECTION [None]
  - OPPORTUNISTIC INFECTION [None]
  - STAPHYLOCOCCAL INFECTION [None]
